FAERS Safety Report 16444690 (Version 1)
Quarter: 2019Q2

REPORT INFORMATION
  Report Type: Report from Study
  Country: US (occurrence: US)
  Receive Date: 20190618
  Receipt Date: 20190618
  Transmission Date: 20190711
  Serious: Yes (Other)
  Sender: FDA-Public Use
  Company Number: US-ASTRAZENECA-2019SE87995

PATIENT
  Sex: Female

DRUGS (11)
  1. TAGRISSO [Suspect]
     Active Substance: OSIMERTINIB
     Indication: LUNG CARCINOMA CELL TYPE UNSPECIFIED STAGE 0
     Dosage: 80.0MG UNKNOWN
     Route: 048
     Dates: start: 20180519, end: 20190612
  2. PROBIOTIC [Concomitant]
     Active Substance: PROBIOTICS NOS
  3. FOLIC ACID. [Concomitant]
     Active Substance: FOLIC ACID
  4. SINGULAIR [Concomitant]
     Active Substance: MONTELUKAST SODIUM
  5. FLONASE [Concomitant]
     Active Substance: FLUTICASONE PROPIONATE
  6. TUMS [Concomitant]
     Active Substance: CALCIUM CARBONATE
  7. AUGMENTIN [Concomitant]
     Active Substance: AMOXICILLIN\CLAVULANATE POTASSIUM
  8. ALLEGRA [Concomitant]
     Active Substance: FEXOFENADINE HYDROCHLORIDE
  9. PRAVASTATIN SODIUM. [Concomitant]
     Active Substance: PRAVASTATIN SODIUM
  10. SPIRONOLACTONE. [Concomitant]
     Active Substance: SPIRONOLACTONE
  11. CALCIUM [Concomitant]
     Active Substance: CALCIUM

REACTIONS (3)
  - Diarrhoea [Unknown]
  - Drug ineffective [Unknown]
  - Dry skin [Unknown]
